FAERS Safety Report 5031574-8 (Version None)
Quarter: 2006Q2

REPORT INFORMATION
  Report Type: 
  Country: None (occurrence: None)
  Receive Date: 20060621
  Receipt Date: 20060515
  Transmission Date: 20061013
  Serious: Yes (Death)
  Sender: FDA-Public Use
  Company Number: TR-GLAXOSMITHKLINE-B0424689A

PATIENT
  Age: 31 Year
  Sex: Female

DRUGS (2)
  1. CEFUROXIME AXETIL [Suspect]
     Route: 065
  2. METAMIZOLE [Suspect]
     Route: 065

REACTIONS (11)
  - BLISTER [None]
  - ERYTHEMA [None]
  - EYELID OEDEMA [None]
  - MOUTH ULCERATION [None]
  - OEDEMA [None]
  - RASH ERYTHEMATOUS [None]
  - RASH MORBILLIFORM [None]
  - RESPIRATORY FAILURE [None]
  - SCAB [None]
  - SEPSIS [None]
  - TOXIC EPIDERMAL NECROLYSIS [None]
